FAERS Safety Report 12745082 (Version 1)
Quarter: 2016Q3

REPORT INFORMATION
  Report Type: Report from Study
  Country: FR (occurrence: FR)
  Receive Date: 20160915
  Receipt Date: 20160915
  Transmission Date: 20161109
  Serious: Yes (Hospitalization)
  Sender: FDA-Public Use
  Company Number: FR-ROCHE-1829156

PATIENT
  Sex: Female

DRUGS (5)
  1. RITUXIMAB [Suspect]
     Active Substance: RITUXIMAB
     Dosage: INFUSION DATES OF RITUXIMAB: 21/JAN/2010 (DAY 15)
     Route: 041
     Dates: start: 20100106
  2. CORTANCYL [Concomitant]
     Active Substance: PREDNISONE
     Route: 065
  3. CORTANCYL [Concomitant]
     Active Substance: PREDNISONE
     Route: 065
  4. RITUXIMAB [Suspect]
     Active Substance: RITUXIMAB
     Indication: RHEUMATOID ARTHRITIS
     Dosage: INFUSION DATES OF RITUXIMAB: 01/FEB/2007 (DAY 15), 08/AUG/2008 (DAY 1), 22/AUG/2008 (DAY 15), 06/JAN
     Route: 041
     Dates: start: 20070118, end: 20080822
  5. CORTANCYL [Concomitant]
     Active Substance: PREDNISONE
     Route: 065

REACTIONS (2)
  - Back pain [Not Recovered/Not Resolved]
  - Radicular pain [Not Recovered/Not Resolved]

NARRATIVE: CASE EVENT DATE: 200711
